FAERS Safety Report 9238929 (Version 3)
Quarter: 2013Q3

REPORT INFORMATION
  Report Type: Report from Study
  Country: KR (occurrence: KR)
  Receive Date: 20130418
  Receipt Date: 20130717
  Transmission Date: 20140515
  Serious: Yes (Hospitalization)
  Sender: FDA-Public Use
  Company Number: KR-ROCHE-1179864

PATIENT
  Age: 57 Year
  Sex: Male
  Weight: 62.4 kg

DRUGS (29)
  1. THIOCTIC ACID [Concomitant]
     Route: 065
     Dates: start: 2008, end: 20121217
  2. THIOCTIC ACID [Concomitant]
     Route: 065
     Dates: start: 20121217, end: 20130410
  3. THIOCTIC ACID [Concomitant]
     Route: 065
     Dates: start: 20130412, end: 20130707
  4. SODIUM ALGINATE [Concomitant]
     Dosage: 8 PACKS
     Route: 065
     Dates: start: 20121012, end: 20121217
  5. ESOMEPRAZOLE [Concomitant]
     Route: 065
     Dates: start: 20121019, end: 20121217
  6. MEGESTROL ACETATE [Concomitant]
     Dosage: 2 PACKS
     Route: 065
     Dates: start: 20121125, end: 20121217
  7. PANBURON [Concomitant]
     Route: 065
     Dates: start: 20121106, end: 20121217
  8. SODIUM BICARBONATE GARGLE [Concomitant]
     Route: 065
     Dates: start: 20121008
  9. PANCREATIN [Concomitant]
     Route: 065
     Dates: start: 20121127, end: 20121217
  10. RANITIDINE [Concomitant]
     Route: 065
     Dates: start: 20121217, end: 20130410
  11. RANITIDINE [Concomitant]
     Route: 065
     Dates: start: 20130416, end: 20130707
  12. GABAPENTIN [Concomitant]
     Route: 065
     Dates: start: 20130412, end: 20130707
  13. WARFARIN [Concomitant]
     Route: 065
     Dates: start: 20130118, end: 20130410
  14. WARFARIN [Concomitant]
     Route: 065
     Dates: start: 20130412, end: 20130707
  15. TRASTUZUMAB [Suspect]
     Indication: GASTRIC CANCER
     Dosage: LAST DOSE PRIOR TO SAE WAS TAKEN ON 27/NOV/2012
     Route: 042
     Dates: start: 20121127
  16. TRASTUZUMAB [Suspect]
     Dosage: LAST DOSE PRIOR TO SAE WAS TAKEN ON 26/MAR/2013
     Route: 042
     Dates: start: 20130326
  17. TRASTUZUMAB [Suspect]
     Dosage: LAST DOSE PRIOR TO SAE WAS TAKEN ON 18/JUN/2013
     Route: 042
     Dates: start: 20130618, end: 20130712
  18. CAPECITABINE [Suspect]
     Indication: GASTRIC CANCER
     Dosage: LAST DOSE PRIOR TO SAE WAS TAKEN ON 11/DEC/2012
     Route: 048
     Dates: start: 20121127
  19. CAPECITABINE [Suspect]
     Dosage: LAST DOSE PRIOR TO SAE WAS TAKEN ON 04/APR/2013
     Route: 048
     Dates: start: 20130326
  20. CAPECITABINE [Suspect]
     Dosage: LAST DOSE PRIOR TO SAE WAS TAKEN ON 07/JUL/2013
     Route: 048
     Dates: start: 20130618, end: 20130712
  21. OXALIPLATIN [Suspect]
     Indication: GASTRIC CANCER
     Dosage: LAST DOSE PRIOR TO SAE WAS TAKEN ON 27/NOV/2012
     Route: 042
     Dates: start: 20121127
  22. OXALIPLATIN [Suspect]
     Dosage: LAST DOSE PRIOR TO SAE WAS TAKEN ON 26/MAR/2013
     Route: 042
     Dates: start: 20130326
  23. OXALIPLATIN [Suspect]
     Dosage: LAST DOSE PRIOR TO SAE WAS TAKEN ON 28/MAY/2013
     Route: 042
     Dates: start: 20130528, end: 20130712
  24. GLIMEPIRIDE [Concomitant]
     Route: 065
     Dates: start: 2008, end: 20121217
  25. GLIMEPIRIDE [Concomitant]
     Route: 065
     Dates: start: 20121217, end: 20130410
  26. GLIMEPIRIDE [Concomitant]
     Route: 065
     Dates: start: 20130412, end: 20130707
  27. VOGLIBOSE [Concomitant]
     Route: 065
     Dates: start: 2008, end: 20121217
  28. VOGLIBOSE [Concomitant]
     Route: 065
     Dates: start: 20121217, end: 20130410
  29. VOGLIBOSE [Concomitant]
     Route: 065
     Dates: start: 20130412, end: 20130707

REACTIONS (2)
  - Obstruction gastric [Recovered/Resolved]
  - Stent malfunction [Recovered/Resolved]
